FAERS Safety Report 4646710-2 (Version None)
Quarter: 2005Q2

REPORT INFORMATION
  Report Type: 
  Country: None (occurrence: None)
  Receive Date: 20050427
  Receipt Date: 20050426
  Transmission Date: 20051028
  Serious: Yes (Death, Life-Threatening, Hospitalization)
  Sender: FDA-Public Use
  Company Number: GB-GLAXOSMITHKLINE-A0555663A

PATIENT

DRUGS (1)
  1. NAVELBINE [Suspect]
     Indication: MESOTHELIOMA
     Dosage: 30MG CYCLIC
     Route: 042

REACTIONS (9)
  - ACIDOSIS [None]
  - ANOXIA [None]
  - BLOOD CREATININE INCREASED [None]
  - DEPRESSED LEVEL OF CONSCIOUSNESS [None]
  - DIARRHOEA [None]
  - HYPOTENSION [None]
  - NEUTROPENIA [None]
  - PYREXIA [None]
  - RENAL FAILURE ACUTE [None]
